FAERS Safety Report 4407784-7 (Version None)
Quarter: 2004Q3

REPORT INFORMATION
  Report Type: 
  Country: None (occurrence: None)
  Receive Date: 20040726
  Receipt Date: 20040719
  Transmission Date: 20050211
  Serious: Yes (Death, Hospitalization, Other)
  Sender: FDA-Public Use
  Company Number: CA-BRISTOL-MYERS SQUIBB COMPANY-12644647

PATIENT

DRUGS (6)
  1. WARFARIN SODIUM [Suspect]
  2. GATIFLOXACIN [Interacting]
  3. CIPROFLOXACIN [Interacting]
  4. LEVOFLOXACIN [Interacting]
  5. MOXIFLOXACIN HCL [Interacting]
  6. NORFLOXACIN [Interacting]

REACTIONS (4)
  - DEATH [None]
  - DRUG INTERACTION [None]
  - HOSPITALISATION [None]
  - INTERNATIONAL NORMALISED RATIO INCREASED [None]
